FAERS Safety Report 19402351 (Version 1)
Quarter: 2021Q2

REPORT INFORMATION
  Report Type: Spontaneous
  Country: US (occurrence: US)
  Receive Date: 20210611
  Receipt Date: 20210611
  Transmission Date: 20210717
  Serious: Yes (Hospitalization, Other)
  Sender: FDA-Public Use
  Company Number: US-ALEMBIC PHARMACUETICALS LIMITED-2021SCAL000274

PATIENT

DRUGS (1)
  1. CLONIDINE??HYDROCHLORIDE [Suspect]
     Active Substance: CLONIDINE HYDROCHLORIDE
     Indication: PRODUCT USED FOR UNKNOWN INDICATION
     Dosage: 247 DOSAGE FORM
     Route: 048

REACTIONS (7)
  - Bradycardia [Recovering/Resolving]
  - Posterior reversible encephalopathy syndrome [Recovering/Resolving]
  - Mental status changes [Recovering/Resolving]
  - Seizure [Recovering/Resolving]
  - Hypertension [Recovering/Resolving]
  - Intentional overdose [Recovering/Resolving]
  - Drug level increased [Unknown]
